FAERS Safety Report 17518291 (Version 1)
Quarter: 2020Q1

REPORT INFORMATION
  Report Type: Report from Study
  Country: ES (occurrence: ES)
  Receive Date: 20200309
  Receipt Date: 20200309
  Transmission Date: 20200409
  Serious: Yes (Hospitalization)
  Sender: FDA-Public Use
  Company Number: ES-MYLANLABS-2020M1024536

PATIENT
  Age: 58 Year
  Sex: Male

DRUGS (6)
  1. ATORVASTATINA                      /01326101/ [Concomitant]
     Active Substance: ATORVASTATIN
     Indication: DYSLIPIDAEMIA
     Dosage: 10 MILLIGRAM, QD
     Route: 048
     Dates: start: 201902
  2. TAMSULOSINA                        /01280302/ [Concomitant]
     Dosage: 0.4 MILLIGRAM, QD
     Route: 048
     Dates: start: 201902
  3. OMEPRAZOL                          /00661201/ [Concomitant]
     Active Substance: OMEPRAZOLE
     Dosage: 20 MILLIGRAM, QD
     Route: 048
     Dates: start: 201707
  4. MYCOPHENOLATE MOFETIL. [Suspect]
     Active Substance: MYCOPHENOLATE MOFETIL
     Indication: SOLID ORGAN TRANSPLANT
     Dosage: 1 GRAM, BID
     Route: 048
     Dates: start: 201902, end: 20190826
  5. TACROLIMUS. [Interacting]
     Active Substance: TACROLIMUS
     Indication: SOLID ORGAN TRANSPLANT
     Dosage: 4 MILLIGRAM, QD
     Route: 048
     Dates: start: 201902
  6. PREDNISONA [Interacting]
     Active Substance: PREDNISONE
     Indication: SOLID ORGAN TRANSPLANT
     Dosage: 5 MILLIGRAM, QD
     Route: 048
     Dates: start: 201902

REACTIONS (2)
  - Cytomegalovirus gastritis [Recovering/Resolving]
  - Drug interaction [Unknown]

NARRATIVE: CASE EVENT DATE: 20190810
